FAERS Safety Report 5189792-4 (Version None)
Quarter: 2006Q4

REPORT INFORMATION
  Report Type: 
  Country: None (occurrence: None)
  Receive Date: 20061215
  Receipt Date: 20061206
  Transmission Date: 20070319
  Serious: Yes (Other)
  Sender: FDA-Public Use
  Company Number: 2006140259

PATIENT
  Age: 41 Year
  Sex: Female

DRUGS (2)
  1. FELDENE [Suspect]
     Indication: MIGRAINE
     Dosage: 60 MG (20 MG, 3 IN 1 D), ORAL
     Route: 048
     Dates: start: 20050101, end: 20061017
  2. FELDENE [Suspect]
     Indication: MYOMECTOMY
     Dosage: 60 MG (20 MG, 3 IN 1 D), ORAL
     Route: 048
     Dates: start: 20050101, end: 20061017

REACTIONS (8)
  - BLISTER [None]
  - ERYTHEMA [None]
  - HEPATITIS C [None]
  - HYPERSENSITIVITY [None]
  - PRURITUS GENERALISED [None]
  - SKIN EXFOLIATION [None]
  - SWELLING FACE [None]
  - TREATMENT NONCOMPLIANCE [None]
